FAERS Safety Report 9531806 (Version 1)
Quarter: 2013Q3

REPORT INFORMATION
  Report Type: Spontaneous
  Country: US (occurrence: None)
  Receive Date: 20130917
  Receipt Date: 20130917
  Transmission Date: 20140515
  Serious: Yes (Life-Threatening)
  Sender: FDA-Public Use
  Company Number: None

PATIENT
  Age: 74 Year
  Sex: Female
  Weight: 50.6 kg

DRUGS (3)
  1. ETOPOSIDE [Suspect]
     Indication: LUNG NEOPLASM MALIGNANT
     Route: 042
     Dates: start: 20130904, end: 20130904
  2. GRANISETRON [Concomitant]
  3. DEXAMETHASONE [Concomitant]

REACTIONS (3)
  - Flushing [None]
  - Dyspnoea [None]
  - Respiratory distress [None]
